FAERS Safety Report 7051026-3 (Version None)
Quarter: 2010Q4

REPORT INFORMATION
  Report Type: 
  Country: None (occurrence: None)
  Receive Date: 20101019
  Receipt Date: 20100907
  Transmission Date: 20110411
  Serious: Yes (Hospitalization, Other)
  Sender: FDA-Public Use
  Company Number: US-BAYER-200930036NA

PATIENT
  Age: 33 Year
  Sex: Female
  Weight: 83 kg

DRUGS (3)
  1. YAZ [Suspect]
     Indication: CONTRACEPTION
     Route: 048
     Dates: start: 20070614, end: 20080124
  2. YAZ [Suspect]
     Route: 048
     Dates: start: 20080430, end: 20090108
  3. EFFEXOR XR [Concomitant]
     Indication: DEPRESSION
     Dates: start: 20070101

REACTIONS (5)
  - DEEP VEIN THROMBOSIS [None]
  - HYPOAESTHESIA [None]
  - INJURY [None]
  - OEDEMA PERIPHERAL [None]
  - PAIN IN EXTREMITY [None]
